FAERS Safety Report 9085724 (Version 3)
Quarter: 2013Q3

REPORT INFORMATION
  Report Type: Spontaneous
  Country: US (occurrence: US)
  Receive Date: 20130131
  Receipt Date: 20130802
  Transmission Date: 20140515
  Serious: No
  Sender: FDA-Public Use
  Company Number: US-B.I. PHARMACEUTICALS,INC./RIDGEFIELD-2013-BI-02793BP

PATIENT
  Age: 85 Year
  Sex: Female
  Weight: 72.12 kg

DRUGS (4)
  1. PRADAXA [Suspect]
     Indication: ATRIAL FIBRILLATION
     Dosage: 300 MG
     Route: 048
     Dates: start: 2011
  2. PRADAXA [Suspect]
     Dosage: 300 MG
     Route: 048
     Dates: start: 2012
  3. SOTALOL [Concomitant]
     Indication: HEART RATE IRREGULAR
  4. SYNTHROID [Concomitant]
     Indication: HYPOTHYROIDISM

REACTIONS (12)
  - Localised infection [Not Recovered/Not Resolved]
  - Erythema [Not Recovered/Not Resolved]
  - Blood pressure increased [Not Recovered/Not Resolved]
  - Pruritus [Unknown]
  - Blood pressure increased [Unknown]
  - Presyncope [Recovered/Resolved]
  - Blood pressure increased [Recovered/Resolved]
  - Dizziness [Recovered/Resolved]
  - Blood pressure increased [Recovered/Resolved]
  - Blood pressure increased [Recovered/Resolved]
  - Gait disturbance [Recovered/Resolved]
  - Dizziness [Recovered/Resolved]
